FAERS Safety Report 4514487-7 (Version None)
Quarter: 2004Q4

REPORT INFORMATION
  Report Type: 
  Country: None (occurrence: None)
  Receive Date: 20040928
  Receipt Date: 20040715
  Transmission Date: 20050328
  Serious: No
  Sender: FDA-Public Use
  Company Number: 04P-163-0267277-00

PATIENT
  Age: 77 Year
  Sex: Female

DRUGS (12)
  1. HUMIRA [Suspect]
     Indication: RHEUMATOID ARTHRITIS
     Dosage: 40 MG, 1 IN 2 WK, SUBCUTANEOUS
     Route: 058
     Dates: start: 20040501
  2. INSULIN [Concomitant]
  3. QUINAPRIL HYDROCHLORIDE [Concomitant]
  4. RALOXIFENE HCL [Concomitant]
  5. LORATADINE [Concomitant]
  6. GLYBURIDE [Concomitant]
  7. BUMETANIDE [Concomitant]
  8. OXYCONTIN [Concomitant]
  9. PANCRELIPASE [Concomitant]
  10. ZOLPIDEM TARTRATE [Concomitant]
  11. OPTIVOR [Concomitant]
  12. BITOPTIC [Concomitant]

REACTIONS (4)
  - BLOOD GLUCOSE INCREASED [None]
  - EYE PRURITUS [None]
  - LACRIMATION INCREASED [None]
  - PHARYNGITIS [None]
